FAERS Safety Report 18993264 (Version 1)
Quarter: 2021Q1

REPORT INFORMATION
  Report Type: Spontaneous
  Country: US (occurrence: US)
  Receive Date: 20210310
  Receipt Date: 20210310
  Transmission Date: 20210420
  Serious: Yes (Death, Hospitalization, Other)
  Sender: FDA-Public Use
  Company Number: US-UPSHER-SMITH LABORATORIES, LLC-2021USL00145

PATIENT
  Sex: Female

DRUGS (3)
  1. AMIODARONE HYDROCHLORIDE. [Suspect]
     Active Substance: AMIODARONE HYDROCHLORIDE
     Indication: ATRIAL FIBRILLATION
     Dosage: UNK
     Route: 048
     Dates: start: 201604
  2. UNSPECIFIED MEDICATIONS [Suspect]
     Active Substance: UNSPECIFIED INGREDIENT
     Indication: PULMONARY TOXICITY
  3. UNSPECIFIED MEDICATIONS [Suspect]
     Active Substance: UNSPECIFIED INGREDIENT
     Indication: INTERSTITIAL LUNG DISEASE

REACTIONS (13)
  - Thyroid function test abnormal [Unknown]
  - Gait disturbance [Unknown]
  - Cardiac failure congestive [Unknown]
  - Off label use [Unknown]
  - Pneumonia [Unknown]
  - Asthenia [Unknown]
  - Interstitial lung disease [Fatal]
  - Contusion [Unknown]
  - Pulmonary toxicity [Unknown]
  - Oedema [Unknown]
  - Respiratory failure [Fatal]
  - Thyroid disorder [Unknown]
  - Unevaluable event [Unknown]

NARRATIVE: CASE EVENT DATE: 201604
